FAERS Safety Report 8003444-4 (Version None)
Quarter: 2011Q4

REPORT INFORMATION
  Report Type: 
  Country: None (occurrence: None)
  Receive Date: 20111222
  Receipt Date: 20111222
  Transmission Date: 20120403
  Serious: Yes (Hospitalization)
  Sender: FDA-Public Use
  Company Number: None

PATIENT
  Age: 41 Year
  Sex: Female
  Weight: 65.77 kg

DRUGS (1)
  1. METHENAMINE TAB [Suspect]

REACTIONS (15)
  - PARAESTHESIA [None]
  - BLOOD PRESSURE INCREASED [None]
  - CONVULSION [None]
  - FATIGUE [None]
  - HYPOAESTHESIA [None]
  - FALL [None]
  - WEIGHT BEARING DIFFICULTY [None]
  - CONFUSIONAL STATE [None]
  - PAIN IN EXTREMITY [None]
  - MUSCULAR WEAKNESS [None]
  - ABASIA [None]
  - DYSKINESIA [None]
  - MUSCLE TIGHTNESS [None]
  - SPEECH DISORDER [None]
  - PAIN [None]
